FAERS Safety Report 5166964-6 (Version None)
Quarter: 2006Q4

REPORT INFORMATION
  Report Type: 
  Country: None (occurrence: None)
  Receive Date: 20061207
  Receipt Date: 20061201
  Transmission Date: 20070319
  Serious: Yes (Other)
  Sender: FDA-Public Use
  Company Number: 2006AP05726

PATIENT
  Age: 67 Year
  Sex: Female

DRUGS (13)
  1. SEROQUEL [Suspect]
     Indication: DEPRESSION
     Route: 048
  2. SEROQUEL [Suspect]
     Indication: PARANOIA
     Route: 048
  3. SEROQUEL [Suspect]
     Indication: SUICIDAL IDEATION
     Route: 048
  4. SEROQUEL [Suspect]
     Route: 048
  5. SEROQUEL [Suspect]
     Route: 048
  6. SEROQUEL [Suspect]
     Route: 048
  7. TENORMIN [Concomitant]
     Indication: BLOOD PRESSURE
     Route: 048
  8. LIPITOR [Concomitant]
     Indication: BLOOD CHOLESTEROL
  9. AVAPRO [Concomitant]
     Indication: BLOOD PRESSURE
  10. CARTIA XT [Concomitant]
     Indication: POOR PERIPHERAL CIRCULATION
     Dosage: DOES NOT TAKE REGULARLY, MOSTLY ON OR BEFORE A FLIGHT
  11. SERAPAX [Concomitant]
     Indication: ANXIETY
  12. SERAPAX [Concomitant]
     Indication: SLEEP DISORDER
  13. ZOLOFT [Concomitant]
     Indication: DEPRESSION

REACTIONS (5)
  - AGGRESSION [None]
  - DEPRESSION [None]
  - FEELING GUILTY [None]
  - PARANOIA [None]
  - SUICIDAL IDEATION [None]
